FAERS Safety Report 9613043 (Version 2)
Quarter: 2013Q4

REPORT INFORMATION
  Report Type: Spontaneous
  Country: US (occurrence: US)
  Receive Date: 20131010
  Receipt Date: 20131016
  Transmission Date: 20140711
  Serious: No
  Sender: FDA-Public Use
  Company Number: US-009507513-1310USA001157

PATIENT
  Age: 74 Year
  Sex: Female

DRUGS (1)
  1. DULERA [Suspect]
     Indication: ASTHMA
     Dosage: 200 MCG/ 5 MCG/ TWO PUFFS DAILY
     Route: 055
     Dates: start: 201307

REACTIONS (2)
  - Drug ineffective [Unknown]
  - Product quality issue [Unknown]
